FAERS Safety Report 4308563-1 (Version None)
Quarter: 2004Q1

REPORT INFORMATION
  Report Type: 
  Country: None (occurrence: None)
  Receive Date: 20040301
  Receipt Date: 20040213
  Transmission Date: 20041129
  Serious: Yes (Hospitalization)
  Sender: FDA-Public Use
  Company Number: WAES 0402USA01051

PATIENT
  Age: 77 Year
  Sex: Female

DRUGS (5)
  1. [THERAPY UNSPECIFIED] [Concomitant]
  2. FOSAMAX [Suspect]
     Route: 048
  3. GASTROINTESTINAL PREPARATIONS (UNSPECIFIED) [Concomitant]
  4. ITRIZOLE [Concomitant]
  5. TRIAZOLAM [Concomitant]

REACTIONS (5)
  - DYSPHAGIA [None]
  - NECROTISING OESOPHAGITIS [None]
  - OESOPHAGEAL CARCINOMA [None]
  - OESOPHAGEAL STENOSIS [None]
  - OESOPHAGEAL ULCER [None]
